FAERS Safety Report 16182201 (Version 1)
Quarter: 2019Q2

REPORT INFORMATION
  Report Type: Report from Study
  Country: US (occurrence: US)
  Receive Date: 20190410
  Receipt Date: 20190410
  Transmission Date: 20190711
  Serious: Yes (Hospitalization, Other)
  Sender: FDA-Public Use
  Company Number: US-GILEAD-2019-0401091

PATIENT
  Age: 64 Year
  Sex: Female

DRUGS (2)
  1. AZTREONAM LYSINE [Suspect]
     Active Substance: AZTREONAM LYSINE
     Indication: PSEUDOMONAS INFECTION
     Dosage: UNK
     Route: 055
     Dates: end: 20190330
  2. AZTREONAM LYSINE [Suspect]
     Active Substance: AZTREONAM LYSINE
     Indication: CYSTIC FIBROSIS LUNG

REACTIONS (3)
  - Sensation of foreign body [Recovered/Resolved]
  - Cystic fibrosis [Unknown]
  - Wheezing [Recovered/Resolved]

NARRATIVE: CASE EVENT DATE: 20190123
